FAERS Safety Report 11122600 (Version 1)
Quarter: 2015Q2

REPORT INFORMATION
  Report Type: Spontaneous
  Country: US (occurrence: None)
  Receive Date: 20150518
  Receipt Date: 20150518
  Transmission Date: 20150821
  Serious: Yes (Life-Threatening)
  Sender: FDA-Public Use
  Company Number: None

PATIENT
  Age: 66 Year
  Sex: Female
  Weight: 102.06 kg

DRUGS (3)
  1. AZACTAM [Suspect]
     Active Substance: AZTREONAM
     Indication: INFECTION
     Dosage: INTRAVENOUS, ONE BAG, INTO A VEIN
     Route: 042
  2. FLUTICASONE [Suspect]
     Active Substance: FLUTICASONE\FLUTICASONE PROPIONATE
     Indication: INFLUENZA
     Dosage: 1 SPRAY ONCE DAILY, ONCE DAILY, INHALATION
     Route: 055
     Dates: start: 20150508, end: 20150509
  3. FLUTICASONE [Suspect]
     Active Substance: FLUTICASONE\FLUTICASONE PROPIONATE
     Indication: NASAL CONGESTION
     Dosage: 1 SPRAY ONCE DAILY, ONCE DAILY, INHALATION
     Route: 055
     Dates: start: 20150508, end: 20150509

REACTIONS (2)
  - Atrial fibrillation [None]
  - Hypotension [None]

NARRATIVE: CASE EVENT DATE: 20150512
